FAERS Safety Report 6865277-1 (Version None)
Quarter: 2010Q3

REPORT INFORMATION
  Report Type: 
  Country: None (occurrence: None)
  Receive Date: 20100721
  Receipt Date: 20080417
  Transmission Date: 20110219
  Serious: No
  Sender: FDA-Public Use
  Company Number: US-PFIZER INC-2008035683

PATIENT
  Sex: Female
  Weight: 90.7 kg

DRUGS (8)
  1. CHANTIX [Suspect]
     Indication: SMOKING CESSATION THERAPY
     Dates: start: 20080101
  2. PREDNISONE [Concomitant]
  3. FOLIC ACID [Concomitant]
  4. DURAGESIC-100 [Concomitant]
  5. HYDROMORPHONE [Concomitant]
     Indication: BREAKTHROUGH PAIN
  6. ESTROTEST [Concomitant]
  7. METHOTREXATE [Concomitant]
  8. XANAX [Concomitant]

REACTIONS (1)
  - NAUSEA [None]
